FAERS Safety Report 10563167 (Version 2)
Quarter: 2015Q1

REPORT INFORMATION
  Report Type: Spontaneous
  Country: IT (occurrence: IT)
  Receive Date: 20141104
  Receipt Date: 20150212
  Transmission Date: 20150720
  Serious: Yes (Hospitalization)
  Sender: FDA-Public Use
  Company Number: IT-SA-2014SA147657

PATIENT
  Age: 80 Year
  Sex: Male

DRUGS (8)
  1. CAPOTEN [Concomitant]
     Active Substance: CAPTOPRIL
  2. FLUCONAZOLE. [Concomitant]
     Active Substance: FLUCONAZOLE
     Dosage: 1 MG TABLETS 20 TABLETS
  3. XANAX [Concomitant]
     Active Substance: ALPRAZOLAM
     Dosage: 0.25 MG TABLETS 20 TABLETS
  4. CARDIOASPIRIN [Suspect]
     Active Substance: ASPIRIN
     Dosage: STRENGTH: 100 MG
     Route: 048
     Dates: start: 20140101, end: 20141020
  5. POTASSIUM CANRENOATE [Concomitant]
     Active Substance: CANRENOATE POTASSIUM
     Dosage: 100 MG HARD CAPSULES 20 CAPSULES
  6. LANOXIN [Concomitant]
     Active Substance: DIGOXIN
     Dosage: 0.250 MG TABLETS 1 BLISTER PACK OF 30 TABLETS
  7. CLEXANE T [Suspect]
     Active Substance: ENOXAPARIN SODIUM
     Route: 058
     Dates: start: 20140920, end: 20141020
  8. NORVASC [Concomitant]
     Active Substance: AMLODIPINE BESYLATE
     Dosage: 5 MG TABLETS 28 TABLETS

REACTIONS (2)
  - Intestinal ulcer [Recovering/Resolving]
  - Rectal haemorrhage [Recovering/Resolving]

NARRATIVE: CASE EVENT DATE: 20141020
